FAERS Safety Report 5229298-7 (Version None)
Quarter: 2007Q1

REPORT INFORMATION
  Report Type: 
  Country: None (occurrence: None)
  Receive Date: 20061201
  Receipt Date: 20060831
  Transmission Date: 20070707
  Serious: No
  Sender: FDA-Public Use
  Company Number: US200609000618

PATIENT
  Age: 58 Year
  Sex: Female

DRUGS (7)
  1. CYMBALTA [Suspect]
     Indication: MIGRAINE
     Dosage: 30 MG DAILY (1/D) ORAL ; 60 MG DAILY (1/D) ORAL
     Route: 048
     Dates: start: 20060301, end: 20060101
  2. CYMBALTA [Suspect]
     Indication: MIGRAINE
     Dosage: 30 MG DAILY (1/D) ORAL ; 60 MG DAILY (1/D) ORAL
     Route: 048
     Dates: start: 20060101
  3. CELEBREX [Concomitant]
  4. LIPITOR [Concomitant]
  5. FLEXERIL [Concomitant]
  6. NORCO [Concomitant]
  7. COVERA-HS [Concomitant]

REACTIONS (2)
  - AMNESIA [None]
  - MIGRAINE [None]
